FAERS Safety Report 25657414 (Version 3)
Quarter: 2025Q4

REPORT INFORMATION
  Report Type: Spontaneous
  Country: US (occurrence: US)
  Receive Date: 20250808
  Receipt Date: 20251210
  Transmission Date: 20260118
  Serious: No
  Sender: SANOFI AVENTIS
  Company Number: US-SA-2025SA232119

PATIENT
  Age: 44 Year
  Sex: Female

DRUGS (1)
  1. DUPIXENT [Suspect]
     Active Substance: DUPILUMAB
     Indication: Asthma
     Dosage: 300 MG, QOW
     Route: 058

REACTIONS (10)
  - Dyspepsia [Unknown]
  - Abdominal discomfort [Unknown]
  - Pain [Unknown]
  - Diarrhoea [Unknown]
  - Pruritus [Unknown]
  - Skin burning sensation [Unknown]
  - Skin fissures [Unknown]
  - Dermatitis [Unknown]
  - Dyspnoea [Unknown]
  - Rash [Unknown]
